FAERS Safety Report 22312230 (Version 7)
Quarter: 2023Q2

REPORT INFORMATION
  Report Type: Spontaneous
  Country: JP (occurrence: JP)
  Receive Date: 20230512
  Receipt Date: 20230630
  Transmission Date: 20230722
  Serious: Yes (Death, Life-Threatening, Other)
  Sender: FDA-Public Use
  Company Number: JP-CHUGAI-2023016284

PATIENT
  Age: 80 Year
  Sex: Female
  Weight: 57 kg

DRUGS (21)
  1. HEMLIBRA [Suspect]
     Active Substance: EMICIZUMAB-KXWH
     Indication: Acquired haemophilia
     Route: 058
     Dates: start: 20230421, end: 20230421
  2. HEMLIBRA [Suspect]
     Active Substance: EMICIZUMAB-KXWH
     Route: 058
     Dates: start: 20230422, end: 20230428
  3. HEMLIBRA [Suspect]
     Active Substance: EMICIZUMAB-KXWH
     Route: 058
     Dates: start: 20230428, end: 20230428
  4. HEMLIBRA [Suspect]
     Active Substance: EMICIZUMAB-KXWH
     Route: 058
     Dates: start: 20230505, end: 20230505
  5. HEMLIBRA [Suspect]
     Active Substance: EMICIZUMAB-KXWH
     Route: 058
     Dates: start: 20230512, end: 20230512
  6. HEMLIBRA [Suspect]
     Active Substance: EMICIZUMAB-KXWH
     Route: 058
     Dates: start: 20230519, end: 20230519
  7. NOVOSEVEN [Suspect]
     Active Substance: COAGULATION FACTOR VIIA RECOMBINANT HUMAN
     Indication: Acquired haemophilia
     Dosage: 90 MICROGRAM/KILOGRAM, Q4H
     Route: 065
     Dates: start: 20230420, end: 20230420
  8. NOVOSEVEN [Suspect]
     Active Substance: COAGULATION FACTOR VIIA RECOMBINANT HUMAN
     Dosage: 90 MICROGRAM/KILOGRAM, Q6H
     Route: 065
     Dates: start: 20230421, end: 20230421
  9. NOVOSEVEN [Suspect]
     Active Substance: COAGULATION FACTOR VIIA RECOMBINANT HUMAN
     Dosage: 90 MICROGRAM/KILOGRAM, Q6H
     Route: 065
     Dates: start: 20230422, end: 20230422
  10. NOVOSEVEN [Suspect]
     Active Substance: COAGULATION FACTOR VIIA RECOMBINANT HUMAN
     Dosage: 90 MICROGRAM/KILOGRAM, Q3H
     Route: 065
     Dates: start: 20230428, end: 20230428
  11. NOVOSEVEN [Suspect]
     Active Substance: COAGULATION FACTOR VIIA RECOMBINANT HUMAN
     Dosage: 90 MICROGRAM/KILOGRAM, Q2H
     Route: 065
     Dates: start: 20230429, end: 2023
  12. NOVOSEVEN [Suspect]
     Active Substance: COAGULATION FACTOR VIIA RECOMBINANT HUMAN
     Dosage: 90 MICROGRAM/KILOGRAM, Q3H
     Route: 065
     Dates: start: 20230502, end: 2023
  13. NOVOSEVEN [Suspect]
     Active Substance: COAGULATION FACTOR VIIA RECOMBINANT HUMAN
     Dosage: 90 MICROGRAM/KILOGRAM, Q6H
     Route: 065
     Dates: start: 20230510
  14. NOVOSEVEN [Suspect]
     Active Substance: COAGULATION FACTOR VIIA RECOMBINANT HUMAN
     Dosage: 90 MICROGRAM/KILOGRAM, Q2H
     Route: 065
     Dates: start: 20230514
  15. NOVOSEVEN [Suspect]
     Active Substance: COAGULATION FACTOR VIIA RECOMBINANT HUMAN
     Route: 065
     Dates: end: 20230519
  16. RITUXIMAB [Suspect]
     Active Substance: RITUXIMAB
     Indication: Acquired haemophilia
     Route: 041
     Dates: start: 20230419
  17. RITUXIMAB [Suspect]
     Active Substance: RITUXIMAB
     Route: 041
     Dates: start: 20230426
  18. RITUXIMAB [Suspect]
     Active Substance: RITUXIMAB
     Route: 041
     Dates: start: 20230504
  19. RITUXIMAB [Suspect]
     Active Substance: RITUXIMAB
     Route: 041
     Dates: start: 20230511
  20. PREDNISOLONE [Suspect]
     Active Substance: PREDNISOLONE
     Indication: Acquired haemophilia
     Dosage: ADMINISTERED UNTIL 12/MAY/2023
     Route: 065
     Dates: start: 20230418, end: 20230512
  21. PREDNISOLONE [Suspect]
     Active Substance: PREDNISOLONE
     Dosage: UNK
     Route: 065

REACTIONS (12)
  - Melaena [Fatal]
  - Shock haemorrhagic [Recovered/Resolved]
  - Plasma cells decreased [Unknown]
  - Renal impairment [Unknown]
  - Cerebral infarction [Unknown]
  - Upper gastrointestinal haemorrhage [Unknown]
  - Restlessness [Recovering/Resolving]
  - Retroperitoneal haemorrhage [Recovered/Resolved]
  - Haematoma muscle [Recovering/Resolving]
  - Shock haemorrhagic [Recovering/Resolving]
  - Catheter site haemorrhage [Recovering/Resolving]
  - Catheter site haemorrhage [Recovered/Resolved]

NARRATIVE: CASE EVENT DATE: 20230428
